FAERS Safety Report 4351185-7 (Version None)
Quarter: 2004Q2

REPORT INFORMATION
  Report Type: 
  Country: None (occurrence: None)
  Receive Date: 20040428
  Receipt Date: 20031128
  Transmission Date: 20050107
  Serious: Yes (Other)
  Sender: FDA-Public Use
  Company Number: US-JNJFOC-20031200493

PATIENT
  Age: 36 Year
  Sex: Male

DRUGS (2)
  1. ULTRAM [Suspect]
     Indication: DRUG USE FOR UNKNOWN INDICATION
     Dosage: ORAL
     Route: 048
  2. ANTIDEPRESSENT TRICYCLIC (TRICYCLIC ANTIDEPRESSENTS) [Concomitant]

REACTIONS (1)
  - GRAND MAL CONVULSION [None]
